FAERS Safety Report 9480430 (Version 1)
Quarter: 2013Q3

REPORT INFORMATION
  Report Type: Spontaneous
  Country: US (occurrence: US)
  Receive Date: 20130828
  Receipt Date: 20130828
  Transmission Date: 20140515
  Serious: Yes (Hospitalization)
  Sender: FDA-Public Use
  Company Number: US-AMGEN-KDL107689

PATIENT
  Sex: Female

DRUGS (2)
  1. ENBREL [Suspect]
     Indication: ANKYLOSING SPONDYLITIS
     Dosage: 25 MG, 2 TIMES/WK
     Route: 058
     Dates: start: 20000901, end: 20011101
  2. AZATHIOPRINE [Concomitant]
     Dosage: UNK UNK, UNK

REACTIONS (3)
  - Crohn^s disease [Unknown]
  - Condition aggravated [Unknown]
  - Pneumonia [Unknown]
